FAERS Safety Report 4502011-4 (Version None)
Quarter: 2004Q4

REPORT INFORMATION
  Report Type: 
  Country: None (occurrence: None)
  Receive Date: 20041115
  Receipt Date: 20041115
  Transmission Date: 20050328
  Serious: Yes (Life-Threatening, Hospitalization)
  Sender: FDA-Public Use
  Company Number: None

PATIENT
  Age: 85 Year
  Sex: Male
  Weight: 76.7 kg

DRUGS (13)
  1. SIMVASTATIN [Suspect]
     Indication: HYPERLIPIDAEMIA
     Dosage: 80MG, 80MG PO ORAL
     Route: 048
     Dates: start: 20040222, end: 20040606
  2. INSULIN HUMAN REGULAR [Concomitant]
  3. RANITIDINE [Concomitant]
  4. ISOSORBIDE MONONITRATE [Concomitant]
  5. NAPROXEN [Concomitant]
  6. IRBESARTAN [Concomitant]
  7. FOLIC ACID [Concomitant]
  8. GLYBURIDE [Concomitant]
  9. HYDROCHLOROTHIAZIDE [Concomitant]
  10. CYANOCOBALAMIN [Concomitant]
  11. CLONIDINE HCL [Concomitant]
  12. ASPIRIN EC TAB [Concomitant]
  13. ATENOLOL [Concomitant]

REACTIONS (1)
  - ASTHENIA [None]
